FAERS Safety Report 4622751-6 (Version None)
Quarter: 2005Q1

REPORT INFORMATION
  Report Type: 
  Country: None (occurrence: None)
  Receive Date: 20050317
  Receipt Date: 20041028
  Transmission Date: 20050727
  Serious: Yes (Other)
  Sender: FDA-Public Use
  Company Number: PHEH2004US10048

PATIENT
  Age: 52 Year
  Sex: Male

DRUGS (3)
  1. TRILEPTAL [Suspect]
     Indication: ANXIETY
     Dosage: 150 MG, BID; ORAL
     Route: 048
     Dates: start: 20040701
  2. TRILEPTAL [Suspect]
     Indication: DEPRESSION
     Dosage: 150 MG, BID; ORAL
     Route: 048
     Dates: start: 20040701
  3. KLONOPIN [Concomitant]

REACTIONS (3)
  - ANXIETY [None]
  - DRUG INEFFECTIVE FOR UNAPPROVED INDICATION [None]
  - HAEMATURIA [None]
